FAERS Safety Report 7985360-7 (Version None)
Quarter: 2011Q4

REPORT INFORMATION
  Report Type: 
  Country: None (occurrence: None)
  Receive Date: 20111216
  Receipt Date: 20111118
  Transmission Date: 20120403
  Serious: No
  Sender: FDA-Public Use
  Company Number: US-ABBOTT-11P-163-0875372-00

PATIENT
  Weight: 86.26 kg

DRUGS (2)
  1. TRILIPIX [Suspect]
     Indication: LOW DENSITY LIPOPROTEIN INCREASED
     Dates: start: 20110801
  2. PREVACID [Concomitant]
     Indication: DYSPEPSIA

REACTIONS (1)
  - DYSPEPSIA [None]
